FAERS Safety Report 15806581 (Version 1)
Quarter: 2019Q1

REPORT INFORMATION
  Report Type: Spontaneous
  Country: US (occurrence: US)
  Receive Date: 20190107
  Receipt Date: 20190107
  Transmission Date: 20190417
  Serious: No
  Sender: FDA-Public Use
  Company Number: None

PATIENT

DRUGS (2)
  1. DOXYCYCLINE MONOHYDRATE [Suspect]
     Active Substance: DOXYCYCLINE
  2. DOXYCHEL HYCLATE [Suspect]
     Active Substance: DOXYCYCLINE HYCLATE

REACTIONS (4)
  - Abdominal pain upper [None]
  - Wrong product administered [None]
  - Vomiting [None]
  - Product dispensing error [None]

NARRATIVE: CASE EVENT DATE: 2018
